FAERS Safety Report 24580356 (Version 1)
Quarter: 2024Q4

REPORT INFORMATION
  Report Type: Spontaneous
  Country: FR (occurrence: FR)
  Receive Date: 20241105
  Receipt Date: 20241105
  Transmission Date: 20250115
  Serious: Yes (Life-Threatening, Other)
  Sender: BAXTER
  Company Number: None

PATIENT
  Age: 50 Year
  Sex: Male

DRUGS (6)
  1. SEVOFLURANE [Suspect]
     Active Substance: SEVOFLURANE
     Indication: General anaesthesia
     Dosage: UNK
     Dates: start: 20241003, end: 20241003
  2. AUGMENTIN [Suspect]
     Active Substance: AMOXICILLIN\CLAVULANATE POTASSIUM
     Indication: Antibiotic prophylaxis
     Dosage: 2 GRAM TOTAL
     Route: 041
     Dates: start: 20241003, end: 20241003
  3. DIPRIVAN [Suspect]
     Active Substance: PROPOFOL
     Indication: General anaesthesia
     Dosage: UNK
     Route: 041
     Dates: start: 20241003, end: 20241003
  4. SUFENTANIL [Suspect]
     Active Substance: SUFENTANIL
     Indication: General anaesthesia
     Dosage: UNK
     Route: 041
     Dates: start: 20241003, end: 20241003
  5. ALFENTANIL [Suspect]
     Active Substance: ALFENTANIL
     Indication: General anaesthesia
     Dosage: UNK
     Route: 041
     Dates: start: 20241003, end: 20241003
  6. SOLU-MEDROL [Suspect]
     Active Substance: METHYLPREDNISOLONE SODIUM SUCCINATE
     Indication: General anaesthesia
     Dosage: 100 MG TOTAL
     Route: 041
     Dates: start: 20241003, end: 20241003

REACTIONS (1)
  - Anaphylactic shock [Recovering/Resolving]

NARRATIVE: CASE EVENT DATE: 20241003
